FAERS Safety Report 9728015 (Version 1)
Quarter: 2013Q4

REPORT INFORMATION
  Report Type: Spontaneous
  Country: FR (occurrence: FR)
  Receive Date: 20131204
  Receipt Date: 20131204
  Transmission Date: 20140711
  Serious: Yes (Hospitalization)
  Sender: FDA-Public Use
  Company Number: FR-MERCK-1312FRA000308

PATIENT
  Age: 62 Year
  Sex: Female
  Weight: 52 kg

DRUGS (3)
  1. VICTRELIS [Suspect]
     Indication: HEPATITIS C
     Dosage: 4 DF, TID
     Route: 048
  2. REBETOL [Suspect]
     Indication: HEPATITIS C
     Dosage: 2 DF, BID
     Route: 048
  3. VIRAFERONPEG [Suspect]
     Indication: HEPATITIS C
     Dosage: 64 MICROGRAM, QW
     Route: 058

REACTIONS (3)
  - General physical health deterioration [Recovering/Resolving]
  - Depression [Recovering/Resolving]
  - Weight decreased [Recovering/Resolving]
